FAERS Safety Report 9205831 (Version 2)
Quarter: 2015Q1

REPORT INFORMATION
  Report Type: Spontaneous
  Country: US (occurrence: None)
  Receive Date: 20130401
  Receipt Date: 20150210
  Transmission Date: 20150721
  Serious: Yes (Disabling, Other)
  Sender: FDA-Public Use
  Company Number: 1303-379

PATIENT
  Age: 94 Year
  Sex: Female

DRUGS (2)
  1. BETADINE (POVIDONE-IODINE) [Concomitant]
  2. EYLEA [Suspect]
     Active Substance: AFLIBERCEPT
     Indication: AGE-RELATED MACULAR DEGENERATION
     Dosage: 2 MG DOSES EVERY 4 WEEKS, INTRAVITREAL INJECTION.
     Route: 031

REACTIONS (6)
  - Eye pain [None]
  - Vision blurred [None]
  - Endophthalmitis [None]
  - Visual acuity reduced [None]
  - Erythema [None]
  - Lacrimation increased [None]

NARRATIVE: CASE EVENT DATE: 20130319
